FAERS Safety Report 6062539-5 (Version None)
Quarter: 2009Q1

REPORT INFORMATION
  Report Type: 
  Country: None (occurrence: None)
  Receive Date: 20090202
  Receipt Date: 20090202
  Transmission Date: 20090719
  Serious: No
  Sender: FDA-Public Use
  Company Number: None

PATIENT
  Sex: Male
  Weight: 94.3482 kg

DRUGS (1)
  1. VENLAFAXINE 75MG GEHNPHARMA [Suspect]
     Indication: ANXIETY
     Dosage: 225MG DAILY PO
     Route: 048
     Dates: start: 20081115, end: 20081120

REACTIONS (8)
  - ARTHRALGIA [None]
  - ASTHENIA [None]
  - BACK PAIN [None]
  - BONE PAIN [None]
  - FATIGUE [None]
  - PAIN IN JAW [None]
  - PYREXIA [None]
  - VIRAL INFECTION [None]
